FAERS Safety Report 16360141 (Version 1)
Quarter: 2019Q2

REPORT INFORMATION
  Report Type: Spontaneous
  Country: US (occurrence: US)
  Receive Date: 20190528
  Receipt Date: 20190528
  Transmission Date: 20190711
  Serious: Yes (Life-Threatening)
  Sender: FDA-Public Use
  Company Number: US-009507513-1905USA009788

PATIENT
  Sex: Female

DRUGS (1)
  1. PROVENTIL [Suspect]
     Active Substance: ALBUTEROL
     Indication: INHALATION THERAPY
     Dosage: UNK, PRN
     Route: 055

REACTIONS (5)
  - Psychological trauma [Unknown]
  - Dyspnoea [Recovered/Resolved]
  - Poor quality device used [Unknown]
  - Panic attack [Unknown]
  - Product container issue [Unknown]
